FAERS Safety Report 8143223-0 (Version None)
Quarter: 2012Q1

REPORT INFORMATION
  Report Type: 
  Country: None (occurrence: None)
  Receive Date: 20120217
  Receipt Date: 20111230
  Transmission Date: 20120608
  Serious: Yes (Hospitalization)
  Sender: FDA-Public Use
  Company Number: FR-ALVOGEN-2012AL000005

PATIENT
  Age: 70 Year
  Sex: Male

DRUGS (5)
  1. XANAX [Suspect]
     Indication: PRODUCT USED FOR UNKNOWN INDICATION
     Route: 048
     Dates: start: 19950101
  2. LERCANIDIPINE [Suspect]
     Indication: PRODUCT USED FOR UNKNOWN INDICATION
     Route: 048
     Dates: start: 20000101
  3. FURADANTIN [Suspect]
     Indication: PRODUCT USED FOR UNKNOWN INDICATION
     Route: 048
     Dates: start: 20101101, end: 20101201
  4. EZETIMIBE [Suspect]
     Indication: PRODUCT USED FOR UNKNOWN INDICATION
     Route: 048
     Dates: start: 19950101
  5. IRBESARTAN + HYDROCHLOROTHIAZIDE [Suspect]
     Indication: PRODUCT USED FOR UNKNOWN INDICATION
     Route: 048
     Dates: start: 20000101, end: 20110215

REACTIONS (6)
  - COLITIS MICROSCOPIC [None]
  - ABDOMINAL PAIN UPPER [None]
  - ABDOMINAL PAIN [None]
  - ABNORMAL FAECES [None]
  - URTICARIA CHRONIC [None]
  - DIARRHOEA [None]
